FAERS Safety Report 5503597-3 (Version None)
Quarter: 2007Q4

REPORT INFORMATION
  Report Type: 
  Country: None (occurrence: None)
  Receive Date: 20071029
  Receipt Date: 20071024
  Transmission Date: 20080405
  Serious: Yes (Death, Life-Threatening, Hospitalization, Disabling, Other)
  Sender: FDA-Public Use
  Company Number: 2005-12-1305

PATIENT
  Age: 65 Year
  Sex: Male
  Weight: 62 kg

DRUGS (3)
  1. PEG-INTRON [Suspect]
     Indication: HEPATITIS C
     Dosage: 100 MCG;QW;SC
     Route: 058
     Dates: start: 20050309, end: 20051220
  2. REBETOL [Suspect]
     Indication: HEPATITIS C
     Dosage: 600 MG;QD;PO
     Route: 048
     Dates: start: 20050309, end: 20051226
  3. URSO 250 [Concomitant]

REACTIONS (19)
  - ANAEMIA [None]
  - AUTOIMMUNE DISORDER [None]
  - BONE MARROW FAILURE [None]
  - CHOLESTASIS [None]
  - CONDITION AGGRAVATED [None]
  - DISSEMINATED INTRAVASCULAR COAGULATION [None]
  - GLOMERULONEPHRITIS MEMBRANOPROLIFERATIVE [None]
  - HEPATIC FAILURE [None]
  - INSOMNIA [None]
  - LUPUS NEPHRITIS [None]
  - LUPUS-LIKE SYNDROME [None]
  - NO THERAPEUTIC RESPONSE [None]
  - PANCREATITIS ACUTE [None]
  - PULMONARY ALVEOLAR HAEMORRHAGE [None]
  - RENAL FAILURE [None]
  - RESPIRATORY FAILURE [None]
  - SEPSIS [None]
  - SEROSITIS [None]
  - SYSTEMIC LUPUS ERYTHEMATOSUS [None]
